FAERS Safety Report 16300418 (Version 2)
Quarter: 2019Q3

REPORT INFORMATION
  Report Type: Spontaneous
  Country: DE (occurrence: DE)
  Receive Date: 20190510
  Receipt Date: 20190708
  Transmission Date: 20191004
  Serious: Yes (Other)
  Sender: FDA-Public Use
  Company Number: DE-SHILPA MEDICARE LIMITED-SML-DE-2019-00112

PATIENT
  Age: 61 Year
  Sex: Male

DRUGS (18)
  1. IMATINIB, UNKNOWN [Suspect]
     Active Substance: IMATINIB
     Dosage: 600 MG QD
     Route: 065
  2. FLUOROURACIL. [Suspect]
     Active Substance: FLUOROURACIL
     Indication: METASTASES TO LIVER
  3. OXALIPLATIN. [Suspect]
     Active Substance: OXALIPLATIN
     Indication: RECTOSIGMOID CANCER
     Route: 065
     Dates: start: 2009
  4. IMATINIB, UNKNOWN [Suspect]
     Active Substance: IMATINIB
     Dosage: 600 MG, QD
     Route: 065
  5. IMATINIB, UNKNOWN [Suspect]
     Active Substance: IMATINIB
     Indication: CHRONIC MYELOID LEUKAEMIA
     Dosage: 400MG QD, DOSE REDUCED
     Route: 065
  6. IMATINIB, UNKNOWN [Suspect]
     Active Substance: IMATINIB
     Indication: CHRONIC MYELOID LEUKAEMIA
     Dosage: 400 MG, QD DOSE REDUCED
     Route: 065
  7. IMATINIB, UNKNOWN [Suspect]
     Active Substance: IMATINIB
     Dosage: 600 MG, QD
     Route: 065
  8. IMATINIB, UNKNOWN [Suspect]
     Active Substance: IMATINIB
     Dosage: 400 MG, QD DOSE REDUCED
     Route: 065
     Dates: start: 2009
  9. HYDROXYUREA. [Concomitant]
     Active Substance: HYDROXYUREA
     Indication: CHRONIC MYELOID LEUKAEMIA
     Route: 065
  10. IMATINIB, UNKNOWN [Suspect]
     Active Substance: IMATINIB
     Dosage: 600MG QD
     Route: 065
  11. IMATINIB, UNKNOWN [Suspect]
     Active Substance: IMATINIB
     Dosage: 400 MG QD DOSE REDUCED
     Route: 065
     Dates: start: 2009
  12. INTERFERON [Concomitant]
     Active Substance: INTERFERON
     Indication: CHRONIC MYELOID LEUKAEMIA
     Route: 065
  13. FLUOROURACIL. [Suspect]
     Active Substance: FLUOROURACIL
     Indication: RECTOSIGMOID CANCER
     Dosage: DURATION 06 MONTS
     Route: 065
     Dates: start: 2009
  14. IMATINIB, UNKNOWN [Suspect]
     Active Substance: IMATINIB
     Dosage: 400 MG, QD
     Route: 065
     Dates: start: 2004
  15. IMATINIB, UNKNOWN [Suspect]
     Active Substance: IMATINIB
     Dosage: 600 MG QD
     Route: 065
     Dates: start: 2013
  16. IMATINIB, UNKNOWN [Suspect]
     Active Substance: IMATINIB
     Dosage: 400MG QD
     Route: 065
     Dates: start: 2004
  17. FOLINIC ACID [Suspect]
     Active Substance: LEUCOVORIN
     Indication: RECTOSIGMOID CANCER
     Route: 065
     Dates: start: 2009
  18. IMATINIB, UNKNOWN [Suspect]
     Active Substance: IMATINIB
     Dosage: 600 MG, QD
     Route: 065
     Dates: start: 2013

REACTIONS (5)
  - Metastases to liver [Unknown]
  - Rectosigmoid cancer [Unknown]
  - Prostate cancer [Unknown]
  - Colon cancer [Unknown]
  - B-cell small lymphocytic lymphoma [Unknown]

NARRATIVE: CASE EVENT DATE: 2007
